FAERS Safety Report 23935739 (Version 2)
Quarter: 2024Q2

REPORT INFORMATION
  Report Type: Spontaneous
  Country: IT (occurrence: IT)
  Receive Date: 20240604
  Receipt Date: 20240619
  Transmission Date: 20240716
  Serious: Yes (Hospitalization, Other)
  Sender: FDA-Public Use
  Company Number: None

PATIENT
  Age: 58 Year
  Sex: Female
  Weight: 97 kg

DRUGS (6)
  1. KEYTRUDA [Suspect]
     Active Substance: PEMBROLIZUMAB
     Indication: Breast cancer
     Dosage: KEYTRUDA 200MG IN 100ML NACL ACCORDING TO PROTOCOL Q 21
     Route: 042
     Dates: start: 202402, end: 202405
  2. PACLITAXEL AUROBINDO [Concomitant]
     Indication: Breast neoplasm
     Dosage: PACLITAXEL 150MG IN 500ML NACL 0.9%
     Route: 042
     Dates: start: 202402, end: 20240419
  3. SODIUM CHLORIDE [Concomitant]
     Active Substance: SODIUM CHLORIDE
     Dosage: 500ML OF NACL SUPPORTIVE THERAPY
     Route: 042
  4. CARBOPLATIN [Concomitant]
     Active Substance: CARBOPLATIN
     Indication: Breast neoplasm
     Dosage: CARBOPLATIN 270MG IN 500ML GLUCOSE 5%
     Route: 042
     Dates: start: 202402, end: 20240419
  5. SODIUM BICARBONATE [Concomitant]
     Active Substance: SODIUM BICARBONATE
     Dosage: SUPPORTIVE THERAPY
     Route: 042
  6. DEXAMETHASONE [Concomitant]
     Active Substance: DEXAMETHASONE
     Dosage: DOSE 4MG IN 100ML NACL
     Route: 042

REACTIONS (2)
  - Hypertransaminasaemia [Recovered/Resolved]
  - Acute kidney injury [Recovered/Resolved]

NARRATIVE: CASE EVENT DATE: 20240503
